FAERS Safety Report 9285717 (Version 1)
Quarter: 2013Q2

REPORT INFORMATION
  Report Type: Spontaneous
  Country: US (occurrence: None)
  Receive Date: 20130510
  Receipt Date: 20130510
  Transmission Date: 20140414
  Serious: Yes (Hospitalization)
  Sender: FDA-Public Use
  Company Number: None

PATIENT
  Age: 92 Year
  Sex: Female
  Weight: 50.5 kg

DRUGS (14)
  1. MORPHINE SR [Suspect]
     Dosage: RECENT
     Route: 048
  2. MORPHINE IR [Suspect]
     Dosage: RECENT
     Route: 048
  3. TRAZODONE [Suspect]
  4. BONIVA [Concomitant]
  5. NIFEDICAL XL [Concomitant]
  6. LABETOLOL 200MG TEVA [Concomitant]
  7. VIT D [Concomitant]
  8. PRAVACHOL [Concomitant]
  9. CLONIDINE [Concomitant]
  10. LATANOPROST [Concomitant]
  11. DORSOLAMIDE/TIMOLOL [Concomitant]
  12. PROCRIT [Concomitant]
  13. HYDRALAZINE [Concomitant]
  14. APAP [Concomitant]

REACTIONS (2)
  - Wrong drug administered [None]
  - Somnolence [None]
